FAERS Safety Report 9564176 (Version 2)
Quarter: 2013Q4

REPORT INFORMATION
  Report Type: Spontaneous
  Country: US (occurrence: US)
  Receive Date: 20130930
  Receipt Date: 20131017
  Transmission Date: 20140711
  Serious: Yes (Hospitalization, Other)
  Sender: FDA-Public Use
  Company Number: US-AMGEN-USASP2013067497

PATIENT
  Age: 60 Year
  Sex: Male
  Weight: 84.4 kg

DRUGS (12)
  1. ENBREL [Suspect]
     Indication: RHEUMATOID ARTHRITIS
     Dosage: 50 MG, QWK
     Route: 058
     Dates: start: 201206, end: 201309
  2. CUBICIN [Suspect]
     Indication: STAPHYLOCOCCAL INFECTION
     Dosage: UNK
     Route: 042
  3. CUBICIN [Suspect]
     Indication: OSTEOMYELITIS
  4. VANCOMYCIN [Suspect]
     Indication: STAPHYLOCOCCAL INFECTION
     Dosage: UNK
     Route: 042
     Dates: end: 20130919
  5. VANCOMYCIN [Suspect]
     Indication: OSTEOMYELITIS
  6. PREDNISONE [Concomitant]
     Dosage: 4 MG, A DAY
  7. CELLCEPT                           /01275102/ [Concomitant]
     Dosage: UNK
  8. ASPIRIN [Concomitant]
     Dosage: A DAY
  9. LEVOTHYROXINE [Concomitant]
     Dosage: 50 MCG A DAY
  10. LISINOPRIL [Concomitant]
     Dosage: UNK
     Dates: end: 2013
  11. METOPROLOL [Concomitant]
     Dosage: UNK
     Dates: end: 2013
  12. SIMVASTATIN [Concomitant]
     Dosage: UNK
     Dates: end: 2013

REACTIONS (20)
  - Pleuritic pain [Unknown]
  - Pulmonary artery dilatation [Unknown]
  - Antisynthetase syndrome [Unknown]
  - Joint range of motion decreased [Unknown]
  - Joint swelling [Unknown]
  - Staphylococcal bacteraemia [Unknown]
  - Staphylococcal infection [Recovered/Resolved]
  - Computerised tomogram abnormal [Unknown]
  - Rash [Unknown]
  - Blood creatine phosphokinase increased [Unknown]
  - Fatigue [Unknown]
  - Dizziness [Unknown]
  - Hypotension [Unknown]
  - Musculoskeletal chest pain [Recovered/Resolved]
  - Hypoaesthesia [Unknown]
  - Pruritus [Unknown]
  - Skin discolouration [Unknown]
  - Arthralgia [Recovered/Resolved]
  - Herpes zoster [Unknown]
  - Osteomyelitis [Unknown]
